FAERS Safety Report 5630410-6 (Version None)
Quarter: 2008Q1

REPORT INFORMATION
  Report Type: 
  Country: None (occurrence: None)
  Receive Date: 20080219
  Receipt Date: 20080214
  Transmission Date: 20080703
  Serious: Yes (Other)
  Sender: FDA-Public Use
  Company Number: PHEH2008US01630

PATIENT
  Sex: Male

DRUGS (2)
  1. ZOMETA [Suspect]
     Indication: NEOPLASM MALIGNANT
     Dosage: 4 MG, UNK
     Dates: start: 20070101
  2. CHEMOTHERAPEUTICS NOS [Concomitant]
     Dosage: UNK, Q 3 WEEKS
     Dates: start: 20070101, end: 20071003

REACTIONS (7)
  - BIOPSY [None]
  - BONE DEBRIDEMENT [None]
  - CENTRAL VENOUS CATHETERISATION [None]
  - INFECTION [None]
  - OSTEONECROSIS [None]
  - PAIN IN JAW [None]
  - TOOTH EXTRACTION [None]
